FAERS Safety Report 16688305 (Version 3)
Quarter: 2019Q3

REPORT INFORMATION
  Report Type: Spontaneous
  Country: LT (occurrence: LT)
  Receive Date: 20190809
  Receipt Date: 20190828
  Transmission Date: 20191004
  Serious: Yes (Hospitalization)
  Sender: FDA-Public Use
  Company Number: LT-PFIZER INC-2019334271

PATIENT
  Age: 21 Year
  Sex: Female

DRUGS (6)
  1. PROPRANOLOL [Concomitant]
     Active Substance: PROPRANOLOL HYDROCHLORIDE
     Indication: HYPERTENSION
     Dosage: 40 MG, 1X/DAY (QD)
  2. PREGABALIN. [Suspect]
     Active Substance: PREGABALIN
     Indication: BLOOD PRESSURE INCREASED
     Dosage: 150 MG, DAILY
  3. PREDNISOLONE. [Suspect]
     Active Substance: PREDNISOLONE
     Indication: CHRONIC SINUSITIS
     Dosage: 20 MG, 1X/DAY (QD)
  4. AMITRIPTYLINE [Suspect]
     Active Substance: AMITRIPTYLINE
     Indication: AUTONOMIC NERVOUS SYSTEM IMBALANCE
     Dosage: 100 MG, 1X/DAY (QD)
  5. AMITRIPTYLINE [Suspect]
     Active Substance: AMITRIPTYLINE
     Indication: BLOOD PRESSURE INCREASED
  6. PREDNISOLONE. [Concomitant]
     Active Substance: PREDNISOLONE
     Dosage: UNK

REACTIONS (2)
  - Off label use [Unknown]
  - Product use in unapproved indication [Unknown]
